FAERS Safety Report 20939461 (Version 1)
Quarter: 2022Q2

REPORT INFORMATION
  Report Type: Spontaneous
  Country: DE (occurrence: None)
  Receive Date: 20220609
  Receipt Date: 20220609
  Transmission Date: 20220721
  Serious: Yes (Other)
  Sender: FDA-Public Use
  Company Number: 2022A208757

PATIENT
  Sex: Female

DRUGS (1)
  1. SEROQUEL [Suspect]
     Active Substance: QUETIAPINE FUMARATE
     Route: 064

REACTIONS (7)
  - Foetal exposure during pregnancy [Unknown]
  - Sitting disability [Unknown]
  - Restless legs syndrome [Unknown]
  - Speech disorder [Unknown]
  - Dysgraphia [Unknown]
  - Disturbance in attention [Unknown]
  - Dizziness [Unknown]
